FAERS Safety Report 7359549-4 (Version None)
Quarter: 2011Q1

REPORT INFORMATION
  Report Type: 
  Country: None (occurrence: None)
  Receive Date: 20110317
  Receipt Date: 20110216
  Transmission Date: 20110831
  Serious: No
  Sender: FDA-Public Use
  Company Number: US-BAYER-2011-016411

PATIENT
  Sex: Male
  Weight: 70 kg

DRUGS (3)
  1. MULTI-VITAMINS [Concomitant]
     Dosage: UNK
     Route: 048
  2. COD LIVER OIL [Concomitant]
     Dosage: UNK
     Route: 048
  3. ALEVE (CAPLET) [Suspect]
     Dosage: DAILY DOSE 5 DF
     Route: 048
     Dates: start: 20110211

REACTIONS (1)
  - NO ADVERSE EVENT [None]
